FAERS Safety Report 5737436-2 (Version None)
Quarter: 2008Q2

REPORT INFORMATION
  Report Type: 
  Country: None (occurrence: None)
  Receive Date: 20080514
  Receipt Date: 20080227
  Transmission Date: 20081010
  Serious: No
  Sender: FDA-Public Use
  Company Number: US-BRISTOL-MYERS SQUIBB COMPANY-14094924

PATIENT

DRUGS (1)
  1. IXEMPRA KIT [Suspect]

REACTIONS (1)
  - BLOOD BILIRUBIN INCREASED [None]
